FAERS Safety Report 15326594 (Version 2)
Quarter: 2018Q4

REPORT INFORMATION
  Report Type: Report from Study
  Country: US (occurrence: US)
  Receive Date: 20180828
  Receipt Date: 20181206
  Transmission Date: 20190204
  Serious: Yes (Death)
  Sender: FDA-Public Use
  Company Number: US-TEVA-2018-US-948071

PATIENT
  Age: 91 Year
  Sex: Male
  Weight: 66.7 kg

DRUGS (28)
  1. CODEINE [Suspect]
     Active Substance: CODEINE
     Route: 065
     Dates: end: 20180617
  2. HYDROCODONE [Suspect]
     Active Substance: HYDROCODONE
     Route: 065
     Dates: end: 20180617
  3. MAGNESIUM [Concomitant]
     Active Substance: MAGNESIUM
     Indication: SUPPLEMENTATION THERAPY
     Dosage: 3 DOSAGE FORMS DAILY;
     Route: 048
  4. KETAMINE [Concomitant]
     Active Substance: KETAMINE
     Indication: PAIN IN EXTREMITY
     Route: 061
     Dates: start: 20161220
  5. CIPRODEX [Concomitant]
     Active Substance: CIPROFLOXACIN HYDROCHLORIDE\DEXAMETHASONE
     Indication: EAR INFECTION
     Dates: start: 20180113, end: 20180122
  6. FISH OIL [Concomitant]
     Active Substance: FISH OIL
     Indication: SUPPLEMENTATION THERAPY
     Dosage: 3000 MILLIGRAM DAILY;
     Route: 048
     Dates: start: 20160412
  7. TORSEMIDE. [Concomitant]
     Active Substance: TORSEMIDE
     Indication: CARDIAC FAILURE CONGESTIVE
     Dosage: 60 MILLIGRAM DAILY; MORNING
     Route: 048
     Dates: start: 20160727
  8. PRILOCAINE [Concomitant]
     Active Substance: PRILOCAINE
     Indication: NEUROPATHY PERIPHERAL
     Route: 061
     Dates: start: 20180411
  9. LIDOCAINE. [Concomitant]
     Active Substance: LIDOCAINE
     Indication: NEUROPATHY PERIPHERAL
     Dates: start: 20180411
  10. PROBIOTICA [Concomitant]
     Active Substance: PROBIOTICS NOS
  11. POTASSIUM CHLORIDE. [Concomitant]
     Active Substance: POTASSIUM CHLORIDE
     Indication: HYPOKALAEMIA
     Route: 048
     Dates: start: 20160411
  12. VITAMIN D3 [Concomitant]
     Active Substance: CHOLECALCIFEROL
     Dates: start: 2008
  13. GABAPENTIN. [Concomitant]
     Active Substance: GABAPENTIN
     Indication: NEUROPATHY PERIPHERAL
     Dosage: 900 MILLIGRAM DAILY;
     Route: 048
     Dates: start: 20161020
  14. CARVEDILOL. [Concomitant]
     Active Substance: CARVEDILOL
     Indication: CARDIAC FAILURE CONGESTIVE
     Dosage: 6.25 MILLIGRAM DAILY;
     Route: 048
     Dates: start: 20160606
  15. MELOXICAM. [Concomitant]
     Active Substance: MELOXICAM
     Indication: NEUROPATHY PERIPHERAL
     Dates: start: 20180411
  16. CAFFEINE. [Suspect]
     Active Substance: CAFFEINE
     Route: 065
     Dates: start: 20180617
  17. ALDACTONE [Concomitant]
     Active Substance: SPIRONOLACTONE
     Indication: CARDIAC FAILURE CONGESTIVE
     Dosage: 50 MILLIGRAM DAILY;
     Route: 048
     Dates: start: 20140820
  18. LIOTHYRONINE SODIUM. [Concomitant]
     Active Substance: LIOTHYRONINE SODIUM
     Dosage: 50 MICROGRAM DAILY;
     Route: 048
     Dates: start: 201712
  19. COENZYME Q10 [Concomitant]
     Active Substance: UBIDECARENONE
     Indication: CORONARY ARTERY DISEASE
     Dosage: 100 MILLIGRAM DAILY;
     Route: 048
     Dates: start: 2008
  20. LEVOTHYROXINE. [Concomitant]
     Active Substance: LEVOTHYROXINE
     Indication: HYPOTHYROIDISM
     Dosage: .88 MICROGRAM DAILY;
     Route: 048
     Dates: start: 20160514
  21. MULTIVITAMIN [Concomitant]
     Active Substance: VITAMINS
     Dosage: 4 DOSAGE FORMS DAILY;
     Route: 048
     Dates: start: 2000
  22. ZOLPIDEM [Suspect]
     Active Substance: ZOLPIDEM\ZOLPIDEM TARTRATE
     Route: 065
     Dates: end: 20180617
  23. ZOPICLONE [Suspect]
     Active Substance: ZOPICLONE
     Route: 065
     Dates: end: 20180617
  24. DIHYDROCODEINE [Suspect]
     Active Substance: DIHYDROCODEINE
     Route: 065
     Dates: end: 20180617
  25. METOLAZONE. [Concomitant]
     Active Substance: METOLAZONE
     Indication: CARDIAC FAILURE CONGESTIVE
     Dosage: 2.5 MILLIGRAM DAILY;
     Route: 048
     Dates: start: 20151027
  26. ACETAMINOPHEN. [Suspect]
     Active Substance: ACETAMINOPHEN
     Route: 065
     Dates: end: 20180617
  27. TORSEMIDE. [Concomitant]
     Active Substance: TORSEMIDE
     Dosage: 40 MILLIGRAM DAILY; AFTERNOON
     Route: 048
     Dates: start: 20160727
  28. TRIAMCINOLONE [Concomitant]
     Active Substance: TRIAMCINOLONE
     Indication: DERMATITIS ATOPIC
     Dosage: 2 DOSAGE FORMS DAILY;
     Route: 061

REACTIONS (2)
  - Completed suicide [Fatal]
  - Toxicity to various agents [Fatal]

NARRATIVE: CASE EVENT DATE: 20180617
